FAERS Safety Report 7540641-6 (Version None)
Quarter: 2011Q2

REPORT INFORMATION
  Report Type: 
  Country: None (occurrence: None)
  Receive Date: 20110610
  Receipt Date: 20110430
  Transmission Date: 20111010
  Serious: Yes (Death)
  Sender: FDA-Public Use
  Company Number: PHHY2011US39156

PATIENT
  Age: 6 Year
  Sex: Male
  Weight: 25 kg

DRUGS (2)
  1. IMIPRAMINE [Suspect]
     Dosage: 200 MG/DAY
  2. IMIPRAMINE [Suspect]
     Indication: ATTENTION DEFICIT/HYPERACTIVITY DISORDER
     Dosage: 50 MG/DAY

REACTIONS (7)
  - PUPIL FIXED [None]
  - CARDIAC ARREST [None]
  - VENTRICULAR TACHYCARDIA [None]
  - CIRCULATORY COLLAPSE [None]
  - CARDIOTOXICITY [None]
  - CARDIAC FIBRILLATION [None]
  - RESPIRATORY DISORDER [None]
